FAERS Safety Report 8564908-8 (Version None)
Quarter: 2012Q3

REPORT INFORMATION
  Report Type: 
  Country: None (occurrence: None)
  Receive Date: 20120803
  Receipt Date: 20120727
  Transmission Date: 20120928
  Serious: Yes (Other)
  Sender: FDA-Public Use
  Company Number: AU-BRISTOL-MYERS SQUIBB COMPANY-16674095

PATIENT
  Age: 81 Year
  Sex: Female
  Weight: 50 kg

DRUGS (15)
  1. LYRICA [Concomitant]
  2. FERROUS SULFATE TAB [Concomitant]
  3. ACETAMINOPHEN [Concomitant]
  4. OXYCODONE HCL [Concomitant]
  5. VOLTAREN [Concomitant]
  6. LERCANIDIPINE [Concomitant]
  7. VENTOLIN [Concomitant]
  8. VITAMIN [Concomitant]
  9. ACTONEL [Concomitant]
  10. PREDNISONE [Concomitant]
  11. LEVOTHYROXINE SODIUM [Concomitant]
  12. CALCIUM CARBONATE [Concomitant]
  13. ORENCIA [Suspect]
     Indication: RHEUMATOID ARTHRITIS
     Route: 042
     Dates: start: 20120402
  14. PLAQUENIL [Concomitant]
  15. AMIODARONE HCL [Concomitant]

REACTIONS (1)
  - CARDIAC DISORDER [None]
